FAERS Safety Report 17805190 (Version 3)
Quarter: 2020Q2

REPORT INFORMATION
  Report Type: Report from Study
  Country: US (occurrence: US)
  Receive Date: 20200520
  Receipt Date: 20200521
  Transmission Date: 20200714
  Serious: Yes (Hospitalization)
  Sender: FDA-Public Use
  Company Number: NVSC2020US132160

PATIENT

DRUGS (7)
  1. METHOTREXATE SODIUM. [Suspect]
     Active Substance: METHOTREXATE SODIUM
     Indication: LYMPHOCYTIC LEUKAEMIA
     Dosage: 15 MG (DAYS 1,8,15,22)
     Route: 037
     Dates: start: 20200409
  2. CYCLOPHOSPHAMIDE. [Suspect]
     Active Substance: CYCLOPHOSPHAMIDE
     Indication: LYMPHOCYTIC LEUKAEMIA
     Dosage: 2400 MG (DAY 1)
     Route: 042
     Dates: start: 20200409
  3. CYTARABINE EBEWE 20 MG/ML, SOLUTION INJECTABLE [Suspect]
     Active Substance: CYTARABINE
     Indication: LYMPHOCYTIC LEUKAEMIA
     Dosage: 180 MG (1-4, 8-11)
     Route: 042
     Dates: start: 20200409
  4. MERCAPTOPURINE. [Suspect]
     Active Substance: MERCAPTOPURINE
     Indication: LYMPHOCYTIC LEUKAEMIA
     Dosage: 150 MG (DAYS1-14)
     Route: 048
     Dates: start: 20200409
  5. INCB018424 [Suspect]
     Active Substance: RUXOLITINIB
     Indication: LYMPHOCYTIC LEUKAEMIA
     Dosage: 100 MG, BID (D1-14)
     Route: 048
     Dates: start: 20200409
  6. PEGASPARGASE [Suspect]
     Active Substance: PEGASPARGASE
     Indication: LYMPHOCYTIC LEUKAEMIA
     Dosage: 300 INTERNATIONAL UNIT D15
     Route: 042
     Dates: start: 20200423
  7. VINCRISTINE [Suspect]
     Active Substance: VINCRISTINE
     Indication: LYMPHOCYTIC LEUKAEMIA
     Dosage: 2 MG (D15,22,43,50)
     Route: 042
     Dates: start: 20200423

REACTIONS (5)
  - Nausea [Recovered/Resolved]
  - Toxicity to various agents [Recovering/Resolving]
  - Vomiting [Recovered/Resolved]
  - Back pain [Recovered/Resolved]
  - Cerebrospinal fluid leakage [Recovered/Resolved]

NARRATIVE: CASE EVENT DATE: 20200430
